FAERS Safety Report 5167118-X (Version None)
Quarter: 2006Q4

REPORT INFORMATION
  Report Type: 
  Country: None (occurrence: None)
  Receive Date: 20061207
  Receipt Date: 20061201
  Transmission Date: 20070319
  Serious: Yes (Other)
  Sender: FDA-Public Use
  Company Number: JP-JPN-A200605162

PATIENT
  Sex: Female

DRUGS (6)
  1. PAXIL [Suspect]
     Indication: DRUG USE FOR UNKNOWN INDICATION
     Dosage: 20MG PER DAY
     Route: 048
  2. TRYPTANOL [Concomitant]
     Route: 048
  3. SULPIRIDE [Concomitant]
     Route: 065
  4. UNKNOWN NAME [Concomitant]
     Route: 048
  5. MICARDIS [Concomitant]
     Route: 048
  6. AMLODIPINE BESYLATE [Concomitant]
     Route: 048

REACTIONS (2)
  - ANAEMIA MACROCYTIC [None]
  - WHITE BLOOD CELL COUNT DECREASED [None]
